FAERS Safety Report 6397734-9 (Version None)
Quarter: 2009Q4

REPORT INFORMATION
  Report Type: 
  Country: None (occurrence: None)
  Receive Date: 20091006
  Receipt Date: 20090923
  Transmission Date: 20100525
  Serious: No
  Sender: FDA-Public Use
  Company Number: 231609K09USA

PATIENT
  Age: 16 Year
  Sex: Male

DRUGS (2)
  1. REBIF [Suspect]
     Indication: OFF LABEL USE
     Dosage: 44 MCG, 3 IN 1 WEEKS, SUBCUTANEOUS
     Route: 058
     Dates: start: 20080515
  2. KEPPRA (LEVETTRACETAM) [Concomitant]

REACTIONS (2)
  - CONVULSION [None]
  - OFF LABEL USE [None]
